FAERS Safety Report 5350298-0 (Version None)
Quarter: 2007Q2

REPORT INFORMATION
  Report Type: 
  Country: None (occurrence: None)
  Receive Date: 20070607
  Receipt Date: 20070530
  Transmission Date: 20071010
  Serious: Yes (Hospitalization, Other)
  Sender: FDA-Public Use
  Company Number: US-AMGEN-STX227119

PATIENT
  Sex: Male

DRUGS (3)
  1. ENBREL [Suspect]
     Indication: RHEUMATOID ARTHRITIS
     Route: 058
     Dates: start: 19990909
  2. SULFASALAZINE [Concomitant]
     Route: 048
     Dates: start: 20060201
  3. PLAQUENIL [Concomitant]
     Route: 048
     Dates: start: 19990909

REACTIONS (5)
  - HEADACHE [None]
  - IIIRD NERVE PARALYSIS [None]
  - LYMPHOMA [None]
  - NAUSEA [None]
  - RHEUMATOID ARTHRITIS [None]
